FAERS Safety Report 4509872-3 (Version None)
Quarter: 2004Q4

REPORT INFORMATION
  Report Type: 
  Country: None (occurrence: None)
  Receive Date: 20041124
  Receipt Date: 20041118
  Transmission Date: 20050328
  Serious: Yes (Hospitalization)
  Sender: FDA-Public Use
  Company Number: US-BRISTOL-MYERS SQUIBB COMPANY-12769550

PATIENT
  Age: 64 Year
  Sex: Female
  Weight: 64 kg

DRUGS (16)
  1. CETUXIMAB [Suspect]
     Indication: COLORECTAL CANCER
     Dosage: THIS WAS PT'S FIRST DOSE.
     Route: 042
     Dates: start: 20041116, end: 20041116
  2. OXALIPLATIN [Suspect]
     Indication: COLORECTAL CANCER
     Dosage: THIS WAS PT'S FIRST DOSE.
     Route: 042
     Dates: start: 20041116, end: 20041116
  3. FLUOROURACIL [Suspect]
     Indication: COLORECTAL CANCER
     Route: 042
     Dates: start: 20041116, end: 20041117
  4. LEUCOVORIN [Suspect]
     Indication: COLORECTAL CANCER
     Dosage: THIS WAS PT'S FIRST DOSE.
     Route: 042
     Dates: start: 20041116, end: 20041116
  5. AMITRIPTYLINE [Concomitant]
  6. PROTONIX [Concomitant]
     Indication: GASTROOESOPHAGEAL REFLUX DISEASE
  7. VITAMIN B-12 [Concomitant]
     Indication: VITAMIN SUPPLEMENTATION
  8. FOLIC ACID [Concomitant]
     Indication: VITAMIN SUPPLEMENTATION
  9. GLUCOSAMINE [Concomitant]
     Indication: ARTHRITIS
  10. MOBIC [Concomitant]
     Indication: ARTHRITIS
  11. PLAVIX [Concomitant]
     Indication: ATHEROSCLEROSIS
  12. ATENOLOL [Concomitant]
     Indication: BLOOD PRESSURE
  13. CALCIUM [Concomitant]
     Indication: VITAMIN SUPPLEMENTATION
  14. PAXIL [Concomitant]
     Indication: DEPRESSION
  15. HYDROMORPHONE HCL [Concomitant]
     Indication: PAIN
  16. DIAZEPAM [Concomitant]
     Indication: ANXIETY

REACTIONS (2)
  - ABDOMINAL PAIN LOWER [None]
  - HAEMATEMESIS [None]
